FAERS Safety Report 5104064-1 (Version None)
Quarter: 2006Q3

REPORT INFORMATION
  Report Type: 
  Country: None (occurrence: None)
  Receive Date: 20060911
  Receipt Date: 20060822
  Transmission Date: 20061208
  Serious: Yes (Hospitalization)
  Sender: FDA-Public Use
  Company Number: FR200606004275

PATIENT
  Age: 81 Year
  Sex: Female
  Weight: 52 kg

DRUGS (10)
  1. FORTEO [Suspect]
     Indication: OSTEOPOROSIS
     Dosage: 20 UG, DAILY (1/D), SUBCUTANEOUS
     Route: 058
     Dates: start: 20060215, end: 20060628
  2. FORTEO [Suspect]
     Indication: OSTEOPOROSIS
     Dosage: 20 UG, DAILY (1/D), SUBCUTANEOUS
     Route: 058
     Dates: start: 20060702
  3. FORTEO PEN (FORTEO PEN) PEN, DISPOSABLE [Concomitant]
  4. TENORMIN [Concomitant]
  5. CORDARONE [Concomitant]
  6. LEVOTHYROXINE SODIUM [Concomitant]
  7. SEROPRAM (CITALOPRAM HYDROBROMIDE) TABLET [Concomitant]
  8. ZALDIAR (PARACETAMOL, TRAMADOL) TABLET [Concomitant]
  9. DITROPAN [Concomitant]
  10. OROCAL D (3) (CALCIUM CARBONATE, COLECALCIFEROL) [Concomitant]

REACTIONS (10)
  - APHASIA [None]
  - CEREBROVASCULAR ACCIDENT [None]
  - CONSTIPATION [None]
  - DRY MOUTH [None]
  - DYSPHAGIA [None]
  - FALL [None]
  - MALAISE [None]
  - MOVEMENT DISORDER [None]
  - RESPIRATORY DISORDER [None]
  - SPEECH DISORDER [None]
